FAERS Safety Report 5205774-8 (Version None)
Quarter: 2007Q1

REPORT INFORMATION
  Report Type: 
  Country: None (occurrence: None)
  Receive Date: 20070111
  Receipt Date: 20070103
  Transmission Date: 20070707
  Serious: Yes (Death, Hospitalization)
  Sender: FDA-Public Use
  Company Number: HQWYE328619OCT06

PATIENT
  Sex: Female
  Weight: 77 kg

DRUGS (1)
  1. ENBREL [Suspect]
     Indication: RHEUMATOID ARTHRITIS
     Route: 058
     Dates: start: 20050509, end: 20061015

REACTIONS (6)
  - ACNE [None]
  - NEOPLASM MALIGNANT [None]
  - PALLOR [None]
  - PRURITUS [None]
  - RASH [None]
  - YELLOW SKIN [None]
